FAERS Safety Report 8132109-3 (Version None)
Quarter: 2012Q1

REPORT INFORMATION
  Report Type: 
  Country: None (occurrence: None)
  Receive Date: 20120208
  Receipt Date: 20120131
  Transmission Date: 20120608
  Serious: Yes (Other)
  Sender: FDA-Public Use
  Company Number: 1000026768

PATIENT
  Age: 55 Year
  Sex: Female

DRUGS (14)
  1. DEPLIN (CALCIUM LEVOMEFOLATE) (CALCIUM LEVOMEFOLATE) [Concomitant]
  2. XANAX [Concomitant]
  3. AVELOX [Suspect]
     Indication: PNEUMONIA
  4. VITAMIN D3 (COLECALCIFEROL) (COLECALCIFEROL) [Concomitant]
  5. AMBIEN [Concomitant]
  6. PROTONIX (PANTOPRAZOLE SODIUM SESQUIHYDRATE) (PANTOPRAZOLE SODIUM SESQ [Concomitant]
  7. VIIBRYD [Suspect]
     Indication: DEPRESSION
     Dosage: 10 MG (10 MG, 1 IN 1 D), ORAL, 20 MG (20 MG, 1 IN 1 D), ORAL, 40 MG (40 MG, 1 IN 1 D), ORAL
     Route: 048
     Dates: start: 20110829, end: 20110101
  8. VIIBRYD [Suspect]
     Indication: DEPRESSION
     Dosage: 10 MG (10 MG, 1 IN 1 D), ORAL, 20 MG (20 MG, 1 IN 1 D), ORAL, 40 MG (40 MG, 1 IN 1 D), ORAL
     Route: 048
     Dates: start: 20110101, end: 20110101
  9. VIIBRYD [Suspect]
     Indication: DEPRESSION
     Dosage: 10 MG (10 MG, 1 IN 1 D), ORAL, 20 MG (20 MG, 1 IN 1 D), ORAL, 40 MG (40 MG, 1 IN 1 D), ORAL
     Route: 048
     Dates: start: 20110101
  10. EXFORGE (DIOVAN AMLO) (DIOVAN AMLO) [Concomitant]
  11. DOXEPIN (DOXEPIN) (DOXEPIN) [Concomitant]
  12. INDERAL [Concomitant]
  13. VYVANSE (LISDEXAMFETAMINE MESILATE) (LISDEXAMFETAMINE MESILATE) [Concomitant]
  14. IMITREX (SUMATRIPTAN) (SUMATRIPTAN) [Concomitant]

REACTIONS (4)
  - ASPIRATION [None]
  - DIARRHOEA [None]
  - PNEUMONIA [None]
  - DRUG INTERACTION [None]
